FAERS Safety Report 12766131 (Version 1)
Quarter: 2016Q3

REPORT INFORMATION
  Report Type: Spontaneous
  Country: JP (occurrence: JP)
  Receive Date: 20160921
  Receipt Date: 20160921
  Transmission Date: 20161109
  Serious: Yes (Other)
  Sender: FDA-Public Use
  Company Number: JP-SA-2016SA014615

PATIENT
  Sex: Female

DRUGS (13)
  1. WARKMIN [Concomitant]
     Active Substance: ALFACALCIDOL
     Dosage: 0.5 MG
     Route: 048
  2. LOCHOL [Concomitant]
     Active Substance: FLUVASTATIN SODIUM
     Dosage: 30 MG
     Route: 048
  3. NEXIUM [Concomitant]
     Active Substance: ESOMEPRAZOLE MAGNESIUM
     Dosage: 10 MG
     Route: 048
  4. NEUROTROPIN [Concomitant]
     Active Substance: NEUROTROPIN
     Route: 048
  5. CELECOX [Concomitant]
     Active Substance: CELECOXIB
     Dosage: 100 MG
     Route: 048
  6. CYMBALTA [Concomitant]
     Active Substance: DULOXETINE HYDROCHLORIDE
     Dosage: 20 MG
     Route: 048
  7. IRSOGLADINE MALEATE [Concomitant]
     Active Substance: IRSOGLADINE MALEATE
     Route: 048
  8. BAYASPIRIN [Concomitant]
     Active Substance: ASPIRIN
     Dosage: 100 MG
     Route: 048
  9. IRBETAN [Concomitant]
     Active Substance: IRBESARTAN
     Dosage: 100 MG
     Route: 048
  10. PLAVIX [Suspect]
     Active Substance: CLOPIDOGREL BISULFATE
     Indication: MYOCARDIAL INFARCTION
     Route: 048
     Dates: start: 20120724
  11. EVAMYL [Concomitant]
     Active Substance: LORMETAZEPAM
     Route: 048
  12. LYRICA [Concomitant]
     Active Substance: PREGABALIN
     Dosage: 75 MG
     Route: 048
  13. NORVASC [Concomitant]
     Active Substance: AMLODIPINE BESYLATE
     Dosage: 5 MG
     Route: 048

REACTIONS (1)
  - Renal impairment [Unknown]

NARRATIVE: CASE EVENT DATE: 201512
